FAERS Safety Report 20138994 (Version 3)
Quarter: 2021Q4

REPORT INFORMATION
  Report Type: Report from Study
  Country: FR (occurrence: FR)
  Receive Date: 20211202
  Receipt Date: 20211214
  Transmission Date: 20220303
  Serious: Yes (Death, Hospitalization, Other)
  Sender: FDA-Public Use
  Company Number: FR-BRISTOL-MYERS SQUIBB COMPANY-BMS-2021-127980

PATIENT
  Age: 76 Year
  Sex: Female

DRUGS (1)
  1. NIVOLUMAB [Suspect]
     Active Substance: NIVOLUMAB
     Indication: Non-small cell lung cancer
     Dosage: 183 MILLIGRAM, Q2WK
     Route: 042
     Dates: start: 20210818

REACTIONS (6)
  - Pulmonary embolism [Fatal]
  - Hypotension [Not Recovered/Not Resolved]
  - Hyperthermia [Unknown]
  - Disturbance in attention [Unknown]
  - Pneumonia [Fatal]
  - Prescribed underdose [Unknown]

NARRATIVE: CASE EVENT DATE: 20211125
